FAERS Safety Report 6291051-3 (Version None)
Quarter: 2009Q3

REPORT INFORMATION
  Report Type: 
  Country: None (occurrence: None)
  Receive Date: 20090730
  Receipt Date: 20090720
  Transmission Date: 20100115
  Serious: Yes (Other)
  Sender: FDA-Public Use
  Company Number: US-PFIZER INC-2009243911

PATIENT
  Sex: Male

DRUGS (1)
  1. CYTOTEC [Suspect]
     Route: 064
     Dates: start: 20070524

REACTIONS (2)
  - BRADYCARDIA FOETAL [None]
  - DRUG EXPOSURE DURING PREGNANCY [None]
